FAERS Safety Report 8011223-7 (Version None)
Quarter: 2011Q4

REPORT INFORMATION
  Report Type: 
  Country: None (occurrence: None)
  Receive Date: 20111228
  Receipt Date: 20111220
  Transmission Date: 20120403
  Serious: Yes (Other)
  Sender: FDA-Public Use
  Company Number: US-BAYER-2011-123052

PATIENT
  Age: 19 Year
  Sex: Female
  Weight: 117.91 kg

DRUGS (4)
  1. PANTOPRAZOLE [Concomitant]
     Dosage: 40 MG, QD
  2. VICODIN [Concomitant]
  3. HYDROCODONE [Concomitant]
     Dosage: 500 MG, PRN
  4. YAZ [Suspect]
     Indication: CONTRACEPTION
     Dosage: UNK
     Dates: start: 20071001, end: 20081001

REACTIONS (3)
  - IRRITABLE BOWEL SYNDROME [None]
  - GALLBLADDER DISORDER [None]
  - CHOLECYSTITIS [None]
